FAERS Safety Report 9397716 (Version 1)
Quarter: 2013Q3

REPORT INFORMATION
  Report Type: Spontaneous
  Country: US (occurrence: US)
  Receive Date: 20130712
  Receipt Date: 20130712
  Transmission Date: 20140515
  Serious: Yes (Hospitalization)
  Sender: FDA-Public Use
  Company Number: US-ASTELLAS-2013US007194

PATIENT
  Sex: Male

DRUGS (1)
  1. PROGRAF [Suspect]
     Indication: LUNG TRANSPLANT
     Dosage: 5.5 MG, UID/QD
     Route: 048

REACTIONS (4)
  - Off label use [Unknown]
  - Nephrolithiasis [Unknown]
  - Nausea [Unknown]
  - Dizziness [Unknown]
